FAERS Safety Report 15991550 (Version 2)
Quarter: 2019Q1

REPORT INFORMATION
  Report Type: Spontaneous
  Country: IT (occurrence: IT)
  Receive Date: 20190221
  Receipt Date: 20190227
  Transmission Date: 20190418
  Serious: Yes (Other)
  Sender: FDA-Public Use
  Company Number: IT-PFIZER INC-2019074694

PATIENT
  Age: 81 Year
  Sex: Female
  Weight: 35 kg

DRUGS (3)
  1. LYRICA [Suspect]
     Active Substance: PREGABALIN
     Dosage: 75 MG, DAILY
  2. LYRICA [Suspect]
     Active Substance: PREGABALIN
     Dosage: 50 MG, 2X/DAY
  3. LYRICA [Suspect]
     Active Substance: PREGABALIN
     Indication: POST HERPETIC NEURALGIA
     Dosage: 25 MG, DAILY

REACTIONS (6)
  - Optic neuritis [Not Recovered/Not Resolved]
  - Blindness [Unknown]
  - Dry mouth [Not Recovered/Not Resolved]
  - Dermatitis bullous [Not Recovered/Not Resolved]
  - Dysphagia [Not Recovered/Not Resolved]
  - Somnolence [Not Recovered/Not Resolved]
